FAERS Safety Report 22346361 (Version 1)
Quarter: 2023Q2

REPORT INFORMATION
  Report Type: Other
  Country: ES (occurrence: ES)
  Receive Date: 20230519
  Receipt Date: 20230519
  Transmission Date: 20230721
  Serious: Yes (Other)
  Sender: FDA-Public Use
  Company Number: ES-TEVA-2022-ES-2011639

PATIENT
  Sex: Female

DRUGS (7)
  1. AVAPRITINIB [Suspect]
     Active Substance: AVAPRITINIB
     Indication: Gastrointestinal stromal tumour
     Dosage: 300 MILLIGRAM DAILY;
     Route: 065
     Dates: start: 201906
  2. IMATINIB [Suspect]
     Active Substance: IMATINIB
     Indication: Gastrointestinal stromal tumour
     Dosage: 800 MILLIGRAM DAILY;
     Route: 065
     Dates: start: 201201, end: 201209
  3. IMATINIB [Suspect]
     Active Substance: IMATINIB
     Dosage: 400 MILLIGRAM DAILY;
     Route: 065
     Dates: start: 201007, end: 201201
  4. SUNITINIB [Suspect]
     Active Substance: SUNITINIB
     Indication: Gastrointestinal stromal tumour
     Dosage: 37.5 MILLIGRAM DAILY;
     Route: 065
     Dates: start: 201210
  5. SORAFENIB [Concomitant]
     Active Substance: SORAFENIB
     Indication: Gastrointestinal stromal tumour
     Dosage: 800 MILLIGRAM DAILY;
     Route: 065
     Dates: start: 201404
  6. REGORAFENIB [Concomitant]
     Active Substance: REGORAFENIB
     Indication: Gastrointestinal stromal tumour
     Dosage: 160 MILLIGRAM DAILY; 3 WEEKS-ON, 1 WEEK-OFF
     Route: 065
     Dates: start: 201506
  7. REGORAFENIB [Concomitant]
     Active Substance: REGORAFENIB
     Dosage: 120 MILLIGRAM DAILY; 3 WEEKS-ON, 1 WEEK-OFF
     Route: 065

REACTIONS (9)
  - Skin toxicity [Unknown]
  - Oedema [Unknown]
  - Oedema peripheral [Recovered/Resolved]
  - Haematotoxicity [Unknown]
  - Eye inflammation [Recovered/Resolved]
  - Cellulitis [Recovered/Resolved]
  - Persistent corneal epithelial defect [Recovered/Resolved]
  - Periorbital cellulitis [Recovered/Resolved]
  - Off label use [Unknown]

NARRATIVE: CASE EVENT DATE: 20190601
